FAERS Safety Report 24010695 (Version 1)
Quarter: 2024Q2

REPORT INFORMATION
  Report Type: Spontaneous
  Country: CN (occurrence: CN)
  Receive Date: 20240625
  Receipt Date: 20240625
  Transmission Date: 20240716
  Serious: Yes (Other)
  Sender: FDA-Public Use
  Company Number: CN-PFIZER INC-PV202400082263

PATIENT
  Age: 61 Year
  Sex: Male
  Weight: 55 kg

DRUGS (1)
  1. EPIRUBICIN [Suspect]
     Active Substance: EPIRUBICIN
     Indication: Lymphoma
     Dosage: 120 MG, 1X/DAY
     Route: 041
     Dates: start: 20240619, end: 20240619

REACTIONS (2)
  - Myocardial injury [Unknown]
  - Troponin T increased [Recovering/Resolving]

NARRATIVE: CASE EVENT DATE: 20240619
